FAERS Safety Report 24392101 (Version 1)
Quarter: 2024Q4

REPORT INFORMATION
  Report Type: Spontaneous
  Country: US (occurrence: US)
  Receive Date: 20241003
  Receipt Date: 20241003
  Transmission Date: 20250115
  Serious: Yes (Death, Hospitalization)
  Sender: AMGEN
  Company Number: US-AMGEN-USASP2024193820

PATIENT
  Age: 91 Year
  Sex: Female

DRUGS (1)
  1. PREDNISONE [Suspect]
     Active Substance: PREDNISONE
     Indication: Pneumonia
     Dosage: UNK
     Route: 065

REACTIONS (4)
  - Death [Fatal]
  - Mycobacterium avium complex infection [Unknown]
  - Coccidioidomycosis [Unknown]
  - Off label use [Unknown]
